FAERS Safety Report 4944331-5 (Version None)
Quarter: 2006Q1

REPORT INFORMATION
  Report Type: 
  Country: None (occurrence: None)
  Receive Date: 20060315
  Receipt Date: 20050601
  Transmission Date: 20060701
  Serious: Yes (Death, Hospitalization, Other)
  Sender: FDA-Public Use
  Company Number: US-MERCK-0506USA00702

PATIENT
  Age: 58 Year
  Sex: Male
  Weight: 127 kg

DRUGS (6)
  1. VIOXX [Suspect]
     Indication: NEUROMA
     Route: 048
     Dates: start: 20010501, end: 20030515
  2. ZOLOFT [Concomitant]
     Route: 065
  3. ZESTRIL [Concomitant]
     Route: 065
  4. AMBIEN [Concomitant]
     Route: 065
  5. CLONIDINE [Concomitant]
     Route: 065
  6. OXYCONTIN [Concomitant]
     Indication: NEUROMA
     Route: 065

REACTIONS (8)
  - ARTHROPATHY [None]
  - CARDIAC DISORDER [None]
  - CARDIO-RESPIRATORY ARREST [None]
  - CHEST PAIN [None]
  - MYOCARDIAL INFARCTION [None]
  - NEUROMA [None]
  - PHANTOM PAIN [None]
  - WEIGHT DECREASED [None]
